FAERS Safety Report 5732170-7 (Version None)
Quarter: 2008Q2

REPORT INFORMATION
  Report Type: 
  Country: None (occurrence: None)
  Receive Date: 20080508
  Receipt Date: 20080425
  Transmission Date: 20081010
  Serious: Yes (Hospitalization)
  Sender: FDA-Public Use
  Company Number: CA-ELI_LILLY_AND_COMPANY-CA200804006721

PATIENT
  Sex: Female

DRUGS (6)
  1. FORTEO [Suspect]
     Indication: OSTEOPOROSIS
     Dosage: 20 UG, DAILY (1/D)
     Route: 058
     Dates: start: 20070524
  2. OMEPRAZOLE [Concomitant]
  3. NOVO-DIFENAC [Concomitant]
  4. APO-HYDROXYQUINE [Concomitant]
  5. METHOTREXATE [Concomitant]
  6. CALCIUM WITH VITAMIN D /00944201/ [Concomitant]

REACTIONS (2)
  - ABDOMINAL PAIN [None]
  - VOMITING [None]
